FAERS Safety Report 11301156 (Version 1)
Quarter: 2015Q3

REPORT INFORMATION
  Report Type: Spontaneous
  Country: US (occurrence: US)
  Receive Date: 20150722
  Receipt Date: 20150722
  Transmission Date: 20151125
  Serious: No
  Sender: FDA-Public Use
  Company Number: US-ELI_LILLY_AND_COMPANY-US201109000570

PATIENT
  Sex: Female

DRUGS (2)
  1. EVISTA [Suspect]
     Active Substance: RALOXIFENE HYDROCHLORIDE
     Indication: OSTEOPOROSIS
     Dosage: 60 MG, QD
     Dates: start: 201104
  2. ALCOHOL. [Concomitant]
     Active Substance: ALCOHOL

REACTIONS (6)
  - Dyspnoea [Unknown]
  - Hangover [Unknown]
  - Alcohol interaction [Unknown]
  - Sinus disorder [Unknown]
  - Hypersensitivity [Unknown]
  - Headache [Unknown]
